FAERS Safety Report 13757211 (Version 1)
Quarter: 2017Q3

REPORT INFORMATION
  Report Type: Spontaneous
  Country: US (occurrence: US)
  Receive Date: 20170714
  Receipt Date: 20170714
  Transmission Date: 20171127
  Serious: Yes (Death)
  Sender: FDA-Public Use
  Company Number: None

PATIENT
  Age: 75 Year
  Sex: Male
  Weight: 76.05 kg

DRUGS (36)
  1. FUROSEMIDE. [Concomitant]
     Active Substance: FUROSEMIDE
  2. MIRALAX [Concomitant]
     Active Substance: POLYETHYLENE GLYCOL 3350
  3. POTASSIUM CHLORIDE. [Concomitant]
     Active Substance: POTASSIUM CHLORIDE
  4. LORAZEPAM. [Concomitant]
     Active Substance: LORAZEPAM
  5. FEXOFENADINE [Concomitant]
     Active Substance: FEXOFENADINE\FEXOFENADINE HYDROCHLORIDE
  6. CHLORPHENIRAMINE. [Concomitant]
     Active Substance: CHLORPHENIRAMINE
  7. LOTRISONE [Concomitant]
     Active Substance: BETAMETHASONE DIPROPIONATE\CLOTRIMAZOLE
  8. XARELTO [Suspect]
     Active Substance: RIVAROXABAN
     Indication: ATRIAL FIBRILLATION
     Dosage: ?          OTHER DOSE:MG;?
     Route: 048
     Dates: start: 20150515, end: 20170711
  9. VERAPAMIL [Concomitant]
     Active Substance: VERAPAMIL HYDROCHLORIDE
  10. BIOTENE NOS [Concomitant]
     Active Substance: CETYLPYRIDINIUM CHLORIDE OR SODIUM FLUORIDE OR SODIUM MONOFLUOROPHOSPHATE OR GLUCOSE OXIDASE\LACTOFERRIN\LACTOPEROXIDASE BOVINE\LYSOZYME
  11. LEVOTHYROXINE. [Concomitant]
     Active Substance: LEVOTHYROXINE
  12. GUAIFENESIN. [Concomitant]
     Active Substance: GUAIFENESIN
  13. SYMBICORT [Concomitant]
     Active Substance: BUDESONIDE\FORMOTEROL FUMARATE DIHYDRATE
  14. ALBUTEROL INHALER [Concomitant]
     Active Substance: ALBUTEROL
  15. OXYBUTYNIN ER [Concomitant]
     Active Substance: OXYBUTYNIN
  16. LYRICA [Concomitant]
     Active Substance: PREGABALIN
  17. APAP [Concomitant]
     Active Substance: ACETAMINOPHEN
  18. MYLANTA [Concomitant]
     Active Substance: ALUMINUM HYDROXIDE\DIMETHICONE\MAGNESIUM HYDROXIDE
  19. BISACODYL. [Concomitant]
     Active Substance: BISACODYL
  20. ALBUTEROL. [Concomitant]
     Active Substance: ALBUTEROL
  21. SPIRIVA [Concomitant]
     Active Substance: TIOTROPIUM BROMIDE MONOHYDRATE
  22. RANITIDINE. [Concomitant]
     Active Substance: RANITIDINE
  23. NYSTOP [Concomitant]
     Active Substance: NYSTATIN
  24. MULTIVITAMIN [Concomitant]
     Active Substance: VITAMINS
  25. CAPSAICIN. [Concomitant]
     Active Substance: CAPSAICIN
  26. VITAMIN D3 [Concomitant]
     Active Substance: CHOLECALCIFEROL
  27. LOSARTAN. [Concomitant]
     Active Substance: LOSARTAN
  28. SENNA-S [Concomitant]
     Active Substance: DOCUSATE SODIUM\SENNOSIDES
  29. LOPERAMIDE [Concomitant]
     Active Substance: LOPERAMIDE
  30. DONEPEZIL. [Concomitant]
     Active Substance: DONEPEZIL
  31. CLONIDINE. [Concomitant]
     Active Substance: CLONIDINE
  32. CARVEDILOL. [Concomitant]
     Active Substance: CARVEDILOL
  33. MAGNESIUM HYDROXIDE. [Concomitant]
     Active Substance: MAGNESIUM HYDROXIDE
  34. FLOMAX [Concomitant]
     Active Substance: TAMSULOSIN HYDROCHLORIDE
  35. ASPIRIN. [Concomitant]
     Active Substance: ASPIRIN
  36. SALINE ENEMA [Concomitant]
     Active Substance: SODIUM PHOSPHATE, DIBASIC\SODIUM PHOSPHATE, MONOBASIC

REACTIONS (7)
  - Pupil fixed [None]
  - Muscular weakness [None]
  - Haemorrhage intracranial [None]
  - Fall [None]
  - Unresponsive to stimuli [None]
  - Communication disorder [None]
  - Cerebral haemorrhage [None]

NARRATIVE: CASE EVENT DATE: 20170711
